FAERS Safety Report 6088379-9 (Version None)
Quarter: 2009Q1

REPORT INFORMATION
  Report Type: 
  Country: None (occurrence: None)
  Receive Date: 20090224
  Receipt Date: 20090216
  Transmission Date: 20090719
  Serious: Yes (Hospitalization)
  Sender: FDA-Public Use
  Company Number: US-BAYER-200913368NA

PATIENT
  Age: 27 Year
  Sex: Female

DRUGS (1)
  1. MIRENA [Suspect]
     Indication: CONTRACEPTION
     Route: 015
     Dates: start: 20090209, end: 20090209

REACTIONS (5)
  - DYSPNOEA [None]
  - LOSS OF CONSCIOUSNESS [None]
  - PAIN [None]
  - UTERINE HAEMORRHAGE [None]
  - UTERINE RUPTURE [None]
